FAERS Safety Report 14246008 (Version 6)
Quarter: 2018Q2

REPORT INFORMATION
  Report Type: Report from Study
  Country: None (occurrence: CA)
  Receive Date: 20171204
  Receipt Date: 20180514
  Transmission Date: 20180711
  Serious: Yes (Other)
  Sender: FDA-Public Use
  Company Number: CA-ABBVIE-17K-028-2178680-00

PATIENT
  Age: 29 Year
  Sex: Female

DRUGS (2)
  1. HUMIRA [Suspect]
     Active Substance: ADALIMUMAB
     Dosage: MISSED DOSE OF 26 APR 2018.
     Route: 058
     Dates: end: 20180412
  2. HUMIRA [Suspect]
     Active Substance: ADALIMUMAB
     Indication: CROHN^S DISEASE
     Route: 058
     Dates: start: 20160906, end: 201711

REACTIONS (7)
  - Arthralgia [Not Recovered/Not Resolved]
  - Pyrexia [Recovered/Resolved]
  - Seizure like phenomena [Recovered/Resolved]
  - Malaise [Not Recovered/Not Resolved]
  - Exposure during pregnancy [Unknown]
  - Hypotension [Recovered/Resolved]
  - Placenta praevia [Not Recovered/Not Resolved]

NARRATIVE: CASE EVENT DATE: 2017
